FAERS Safety Report 9018206 (Version 1)
Quarter: 2013Q1

REPORT INFORMATION
  Report Type: Report from Study
  Country: DE (occurrence: DE)
  Receive Date: 20130117
  Receipt Date: 20130117
  Transmission Date: 20140127
  Serious: Yes (Hospitalization)
  Sender: FDA-Public Use
  Company Number: DE-BAXTER-2013BAX001495

PATIENT
  Age: 69 Year
  Sex: Female
  Weight: 84 kg

DRUGS (3)
  1. ENDOXAN 1G [Suspect]
     Indication: B-CELL LYMPHOMA
     Route: 042
     Dates: start: 20090418
  2. RITUXIMAB [Suspect]
     Indication: B-CELL LYMPHOMA
     Route: 042
     Dates: start: 20090417
  3. FLUDARABINE [Suspect]
     Indication: B-CELL LYMPHOMA
     Route: 042
     Dates: start: 20090418

REACTIONS (1)
  - Pneumonia [Recovered/Resolved]
